FAERS Safety Report 7166662-3 (Version None)
Quarter: 2010Q4

REPORT INFORMATION
  Report Type: 
  Country: None (occurrence: None)
  Receive Date: 20101216
  Receipt Date: 20101208
  Transmission Date: 20110411
  Serious: Yes (Hospitalization)
  Sender: FDA-Public Use
  Company Number: JP-ASTRAZENECA-2010SE58693

PATIENT
  Age: 70 Year
  Sex: Female

DRUGS (2)
  1. FOSCAVIR [Suspect]
     Dosage: DOSE UNKNOWN
     Route: 042
     Dates: end: 20101207
  2. BAKTAR [Suspect]
     Dosage: 9A/DAY
     Route: 041
     Dates: start: 20101203, end: 20101207

REACTIONS (1)
  - HEPATITIS [None]
